FAERS Safety Report 14036036 (Version 1)
Quarter: 2017Q4

REPORT INFORMATION
  Report Type: Spontaneous
  Country: US (occurrence: US)
  Receive Date: 20171003
  Receipt Date: 20171003
  Transmission Date: 20180321
  Serious: No
  Sender: FDA-Public Use
  Company Number: US-ROCHE-1931921

PATIENT
  Age: 53 Year
  Sex: Male

DRUGS (1)
  1. VEMURAFENIB. [Suspect]
     Active Substance: VEMURAFENIB
     Indication: METASTATIC MALIGNANT MELANOMA
     Route: 048

REACTIONS (1)
  - Dermatitis [Unknown]
